FAERS Safety Report 6519340-5 (Version None)
Quarter: 2009Q4

REPORT INFORMATION
  Report Type: 
  Country: None (occurrence: None)
  Receive Date: 20091228
  Receipt Date: 20091214
  Transmission Date: 20100525
  Serious: Yes (Other)
  Sender: FDA-Public Use
  Company Number: US-PFIZER INC-2009290337

PATIENT
  Sex: Male
  Weight: 21.6 kg

DRUGS (6)
  1. GENOTROPIN [Suspect]
     Indication: GROWTH HORMONE DEFICIENCY
     Dosage: 1 MG, 1X/DAY
     Route: 058
     Dates: start: 20070401, end: 20090914
  2. GENOTROPIN [Suspect]
     Indication: INSULIN-LIKE GROWTH FACTOR DECREASED
  3. GENOTROPIN [Suspect]
     Indication: BONE DISORDER
  4. GENOTROPIN [Suspect]
     Indication: GROWTH RETARDATION
  5. ZYRTEC [Concomitant]
     Dosage: UNK
  6. ADVAIR DISKUS 100/50 [Concomitant]
     Dosage: UNK

REACTIONS (4)
  - BLOOD CREATINE PHOSPHOKINASE INCREASED [None]
  - MUSCULOSKELETAL DISCOMFORT [None]
  - MYOPATHY [None]
  - TENDON PAIN [None]
